FAERS Safety Report 9321832 (Version 1)
Quarter: 2013Q2

REPORT INFORMATION
  Report Type: Report from Study
  Country: US (occurrence: US)
  Receive Date: 20130531
  Receipt Date: 20130531
  Transmission Date: 20140414
  Serious: No
  Sender: FDA-Public Use
  Company Number: US-ABBOTT-12P-163-0978965-00

PATIENT
  Age: 46 Year
  Sex: Female
  Weight: 59.02 kg

DRUGS (2)
  1. MARINOL [Suspect]
     Indication: NAUSEA
     Dates: start: 201206
  2. MARINOL [Suspect]
     Indication: VOMITING

REACTIONS (1)
  - Vomiting [Not Recovered/Not Resolved]
